FAERS Safety Report 17558439 (Version 1)
Quarter: 2020Q1

REPORT INFORMATION
  Report Type: Other
  Country: US (occurrence: US)
  Receive Date: 20200318
  Receipt Date: 20200318
  Transmission Date: 20200409
  Serious: Yes (Hospitalization)
  Sender: FDA-Public Use
  Company Number: US-ALLIED PHARMA-000005

PATIENT
  Age: 72 Year
  Sex: Male

DRUGS (3)
  1. SELEGILINE [Suspect]
     Active Substance: SELEGILINE
     Indication: ON AND OFF PHENOMENON
     Dosage: 5 MG TWICE DAILY
  2. CARBIDOPA/LEVODOPA [Suspect]
     Active Substance: CARBIDOPA\LEVODOPA
     Indication: TREMOR
     Dosage: EIGHT TABLETS OF CARBIDOPA/LEVODOPA 10/100 DAILY
     Route: 048
  3. CARBIDOPA/LEVODOPA [Suspect]
     Active Substance: CARBIDOPA\LEVODOPA
     Indication: TREMOR
     Dosage: ONE TABLET OF CARBIDOPA/LEVODOPA 10/100 THREE TIMES DAILY
     Route: 048

REACTIONS (2)
  - Hypersexuality [Recovered/Resolved]
  - Paraphilia [Recovered/Resolved]
